FAERS Safety Report 8420243-X (Version None)
Quarter: 2012Q2

REPORT INFORMATION
  Report Type: 
  Country: None (occurrence: None)
  Receive Date: 20120607
  Receipt Date: 20120606
  Transmission Date: 20120825
  Serious: Yes (Other)
  Sender: FDA-Public Use
  Company Number: US-PFIZER INC-2012136750

PATIENT
  Sex: Female
  Weight: 72.562 kg

DRUGS (5)
  1. CALCIUM W/MAGNESIUM [Concomitant]
     Dosage: UNK
  2. CHANTIX [Suspect]
     Indication: SMOKING CESSATION THERAPY
     Dosage: 0.5 MG, 1X/DAY
     Route: 048
     Dates: start: 20100101, end: 20100101
  3. VITAMIN D [Concomitant]
     Dosage: UNK
  4. ASCORBIC ACID [Concomitant]
     Dosage: UNK
  5. VITAMIN D [Concomitant]
     Dosage: UNK

REACTIONS (6)
  - BACK PAIN [None]
  - NAUSEA [None]
  - WEIGHT INCREASED [None]
  - GALLBLADDER PAIN [None]
  - CHOLELITHIASIS [None]
  - PAIN [None]
